FAERS Safety Report 15036519 (Version 1)
Quarter: 2018Q2

REPORT INFORMATION
  Report Type: Spontaneous
  Country: GB (occurrence: GB)
  Receive Date: 20180620
  Receipt Date: 20180620
  Transmission Date: 20180711
  Serious: Yes (Other)
  Sender: FDA-Public Use
  Company Number: GB-PFIZER INC-2018245725

PATIENT
  Age: 51 Year
  Sex: Male

DRUGS (3)
  1. OXALIPLATIN. [Suspect]
     Active Substance: OXALIPLATIN
     Indication: HEREDITARY NON-POLYPOSIS COLORECTAL CANCER SYNDROME
     Dosage: 130 MG/M2, CYCLIC (ADMINISTERED ON THE FIRST DAY OF EACH CYCLE)
     Route: 042
  2. DOMPERIDONE [Suspect]
     Active Substance: DOMPERIDONE
     Indication: ANTIEMETIC SUPPORTIVE CARE
     Dosage: 20 MG, 3X/DAY (GIVEN OVER 5 DAYS AT THE BEGINNING OF EACH CYCLE)
  3. CAPECITABINE. [Interacting]
     Active Substance: CAPECITABINE
     Indication: HEREDITARY NON-POLYPOSIS COLORECTAL CANCER SYNDROME
     Dosage: 1000 MG/M2, CYCLIC (TAKEN TWICE DAILY FOR 2 WEEKS)
     Route: 048

REACTIONS (3)
  - Cardiac arrest [Recovered/Resolved]
  - Drug interaction [Unknown]
  - Long QT syndrome [Unknown]
